FAERS Safety Report 8409998-8 (Version None)
Quarter: 2012Q2

REPORT INFORMATION
  Report Type: 
  Country: None (occurrence: None)
  Receive Date: 20120605
  Receipt Date: 20120529
  Transmission Date: 20120825
  Serious: Yes (Hospitalization, Other)
  Sender: FDA-Public Use
  Company Number: US-BAYER-2011-112503

PATIENT
  Age: 29 Year
  Sex: Female
  Weight: 78.912 kg

DRUGS (14)
  1. YASMIN [Suspect]
     Indication: PREMENSTRUAL SYNDROME
  2. ZOLOFT [Concomitant]
     Dosage: 100MG
  3. YASMIN [Suspect]
     Indication: CONTRACEPTION
     Dosage: UNK
     Dates: start: 20030101, end: 20070101
  4. YASMIN [Suspect]
     Indication: MENSTRUAL CYCLE MANAGEMENT
  5. NAPROXEN [Concomitant]
     Dosage: 500MG
  6. LEXAPRO [Concomitant]
     Dosage: 10MG
  7. YAZ [Suspect]
     Indication: MENSTRUAL CYCLE MANAGEMENT
  8. FAMOTIDINE [Concomitant]
     Dosage: 20MG
  9. YAZ [Suspect]
     Indication: CONTRACEPTION
     Dosage: UNK
     Dates: start: 20070101, end: 20090101
  10. LORAZEPAM [Concomitant]
     Indication: PANIC ATTACK
     Dosage: 0.5 MG, PRN
     Route: 048
     Dates: start: 19960101, end: 20060101
  11. DONNATAL [Concomitant]
  12. YAZ [Suspect]
     Indication: PREMENSTRUAL SYNDROME
  13. PEPCID [Concomitant]
  14. KETOROLAC TROMETHAMINE [Concomitant]
     Dosage: 10MG

REACTIONS (10)
  - GALLBLADDER DISORDER [None]
  - INJURY [None]
  - ABDOMINAL PAIN [None]
  - CHOLECYSTITIS CHRONIC [None]
  - PAIN [None]
  - ANHEDONIA [None]
  - DYSPEPSIA [None]
  - EMOTIONAL DISTRESS [None]
  - GENERAL PHYSICAL HEALTH DETERIORATION [None]
  - ANXIETY [None]
